FAERS Safety Report 19231324 (Version 2)
Quarter: 2021Q2

REPORT INFORMATION
  Report Type: Report from Study
  Country: IT (occurrence: IT)
  Receive Date: 20210507
  Receipt Date: 20210621
  Transmission Date: 20210717
  Serious: Yes (Hospitalization)
  Sender: FDA-Public Use
  Company Number: IT-SUNOVION-2021SUN001721

PATIENT
  Sex: Male

DRUGS (1)
  1. LATUDA [Suspect]
     Active Substance: LURASIDONE HYDROCHLORIDE
     Indication: PRODUCT USED FOR UNKNOWN INDICATION
     Dosage: 3 TABLETS, QD
     Route: 048

REACTIONS (2)
  - Malaise [Recovered/Resolved]
  - Anxiety [Recovered/Resolved]
